FAERS Safety Report 10240805 (Version 1)
Quarter: 2014Q2

REPORT INFORMATION
  Report Type: Spontaneous
  Country: US (occurrence: US)
  Receive Date: 20140617
  Receipt Date: 20140617
  Transmission Date: 20141212
  Serious: No
  Sender: FDA-Public Use
  Company Number: US-PFIZER INC-2014163953

PATIENT
  Age: 80 Year
  Sex: Female
  Weight: 95.2 kg

DRUGS (5)
  1. LYRICA [Suspect]
     Indication: POST HERPETIC NEURALGIA
     Dosage: 50 MG, 1X/DAY
     Route: 048
  2. LORTAB [Concomitant]
     Indication: PAIN
     Dosage: 7.5/325, 3/XDAY
  3. AMLODIPINE [Concomitant]
     Indication: HYPERTENSION
     Dosage: 5 MG, UNK
  4. FUROSEMIDE [Concomitant]
     Indication: CARDIAC FAILURE CONGESTIVE
     Dosage: 20 MG, 1X/DAY
  5. GABAPENTIN [Concomitant]
     Dosage: UNK

REACTIONS (1)
  - Pain [Not Recovered/Not Resolved]
